FAERS Safety Report 17251440 (Version 1)
Quarter: 2020Q1

REPORT INFORMATION
  Report Type: Spontaneous
  Country: US (occurrence: US)
  Receive Date: 20200109
  Receipt Date: 20200109
  Transmission Date: 20200409
  Serious: Yes (Other)
  Sender: FDA-Public Use
  Company Number: NVSC2020US003321

PATIENT
  Age: 72 Year
  Sex: Female

DRUGS (1)
  1. IMATINIB. [Suspect]
     Active Substance: IMATINIB MESYLATE
     Indication: CHRONIC MYELOID LEUKAEMIA
     Dosage: 400 MG, QD
     Route: 065
     Dates: start: 2000

REACTIONS (6)
  - Diplegia [Unknown]
  - Asthenia [Unknown]
  - Myelitis transverse [Recovering/Resolving]
  - Hyperreflexia [Unknown]
  - Sensory loss [Unknown]
  - Neurotoxicity [Unknown]
